FAERS Safety Report 11334132 (Version 1)
Quarter: 2015Q3

REPORT INFORMATION
  Report Type: Report from Study
  Country: DE (occurrence: DE)
  Receive Date: 20150803
  Receipt Date: 20150803
  Transmission Date: 20151125
  Serious: Yes (Life-Threatening, Hospitalization)
  Sender: FDA-Public Use
  Company Number: PHHO2011DE08266

PATIENT

DRUGS (4)
  1. LBH589 [Suspect]
     Active Substance: PANOBINOSTAT
     Indication: PLASMA CELL MYELOMA
     Dosage: 20 MG TIW, (2 WEEKS ON/1 WEEK OFF)
     Route: 048
     Dates: start: 20110401, end: 20110510
  2. COMPARATOR FORTECORTIN [Suspect]
     Active Substance: DEXAMETHASONE
     Indication: PLASMA CELL MYELOMA
     Dosage: 10 MG, UNK
     Route: 048
     Dates: start: 20110401, end: 20110510
  3. LBH589 [Suspect]
     Active Substance: PANOBINOSTAT
     Dosage: 20 MG TIW, (2 WEEKS ON/1 WEEK OFF)
     Route: 048
     Dates: start: 20110603
  4. VELCADE [Suspect]
     Active Substance: BORTEZOMIB
     Indication: PLASMA CELL MYELOMA
     Dosage: 1.0 MG/M2, UNK
     Route: 042
     Dates: start: 20110401, end: 20110509

REACTIONS (3)
  - Pulmonary embolism [Recovered/Resolved]
  - Myocardial ischaemia [Recovered/Resolved]
  - Deep vein thrombosis [Recovered/Resolved]

NARRATIVE: CASE EVENT DATE: 20110511
